FAERS Safety Report 8003125-7 (Version None)
Quarter: 2011Q4

REPORT INFORMATION
  Report Type: 
  Country: None (occurrence: None)
  Receive Date: 20111219
  Receipt Date: 20111212
  Transmission Date: 20120403
  Serious: Yes (Other)
  Sender: FDA-Public Use
  Company Number: 2011-IT-0040

PATIENT
  Sex: Male

DRUGS (2)
  1. NITROGLYCERIN [Suspect]
  2. UNKNOWN; FORMULATION UNKNOWN [Suspect]

REACTIONS (1)
  - PRESYNCOPE [None]
